FAERS Safety Report 12058043 (Version 3)
Quarter: 2018Q1

REPORT INFORMATION
  Report Type: Spontaneous
  Country: US (occurrence: US)
  Receive Date: 20160209
  Receipt Date: 20180125
  Transmission Date: 20180508
  Serious: No
  Sender: FDA-Public Use
  Company Number: US-ABBVIE-15P-163-1490254-00

PATIENT
  Sex: Female

DRUGS (1)
  1. HUMIRA [Suspect]
     Active Substance: ADALIMUMAB
     Indication: PRODUCT USED FOR UNKNOWN INDICATION
     Route: 058
     Dates: start: 2008

REACTIONS (10)
  - Gait disturbance [Unknown]
  - Pain in extremity [Unknown]
  - Injection site pain [Unknown]
  - Loss of personal independence in daily activities [Unknown]
  - Drug effect delayed [Unknown]
  - Economic problem [Unknown]
  - Crohn^s disease [Unknown]
  - Hidradenitis [Unknown]
  - Urinary tract infection [Unknown]
  - Pain [Unknown]
